FAERS Safety Report 11117737 (Version 1)
Quarter: 2015Q2

REPORT INFORMATION
  Report Type: Spontaneous
  Country: US (occurrence: US)
  Receive Date: 20150518
  Receipt Date: 20150518
  Transmission Date: 20150821
  Serious: Yes (Death, Hospitalization, Other)
  Sender: FDA-Public Use
  Company Number: US-GLENMARK GENERICS INC.-2015GMK016791

PATIENT
  Age: 57 Year
  Sex: Male

DRUGS (1)
  1. MOEXIPRIL HYDROCHLORIDE AND HYDROCHLOROTHIAZIDE [Suspect]
     Active Substance: HYDROCHLOROTHIAZIDE\MOEXIPRIL HYDROCHLORIDE
     Indication: HYPERTENSION
     Dosage: UNK

REACTIONS (8)
  - Blood creatine increased [Unknown]
  - Neutropenic colitis [Fatal]
  - Necrotising colitis [Fatal]
  - Septic shock [Fatal]
  - Multi-organ failure [Fatal]
  - Areflexia [Unknown]
  - Neutropenia [Fatal]
  - Blood lactic acid increased [Unknown]
